FAERS Safety Report 16900081 (Version 2)
Quarter: 2019Q4

REPORT INFORMATION
  Report Type: Spontaneous
  Country: AU (occurrence: AU)
  Receive Date: 20191009
  Receipt Date: 20191108
  Transmission Date: 20200122
  Serious: Yes (Hospitalization)
  Sender: FDA-Public Use
  Company Number: AU-JNJFOC-20190937044

PATIENT
  Age: 38 Year
  Sex: Male

DRUGS (16)
  1. CLOPINE [Suspect]
     Active Substance: CLOZAPINE
     Indication: PSYCHOTIC DISORDER
     Route: 048
     Dates: start: 20070627
  2. QUETIAPINE. [Suspect]
     Active Substance: QUETIAPINE
     Indication: PRODUCT USED FOR UNKNOWN INDICATION
     Route: 065
     Dates: end: 20180116
  3. DOCUSATE SODIUM. [Concomitant]
     Active Substance: DOCUSATE SODIUM
  4. INVEGA SUSTENNA [Suspect]
     Active Substance: PALIPERIDONE PALMITATE
     Indication: SCHIZOPHRENIA
     Route: 030
  5. LORAZEPAM. [Concomitant]
     Active Substance: LORAZEPAM
     Route: 048
  6. FISH OIL [Concomitant]
     Active Substance: FISH OIL
  7. PANTOPRAZOLE [Concomitant]
     Active Substance: PANTOPRAZOLE
     Indication: VOCAL CORD PARESIS
  8. LORAZEPAM. [Concomitant]
     Active Substance: LORAZEPAM
     Indication: SCHIZOPHRENIA
  9. NICOTINE. [Concomitant]
     Active Substance: NICOTINE
     Indication: LARYNGITIS
  10. CLOPINE [Suspect]
     Active Substance: CLOZAPINE
     Route: 048
     Dates: start: 20180314
  11. THIAMINE. [Concomitant]
     Active Substance: THIAMINE
     Indication: PROPHYLAXIS
  12. CLOPINE [Suspect]
     Active Substance: CLOZAPINE
     Route: 048
     Dates: end: 20190316
  13. CLOPINE [Suspect]
     Active Substance: CLOZAPINE
     Route: 048
     Dates: end: 20180116
  14. CITALOPRAM [Suspect]
     Active Substance: CITALOPRAM HYDROBROMIDE
     Indication: PRODUCT USED FOR UNKNOWN INDICATION
     Route: 065
     Dates: end: 20180116
  15. ENOXAPARIN [Concomitant]
     Active Substance: ENOXAPARIN
     Indication: PROPHYLAXIS
     Route: 058
  16. SYMBICORT [Concomitant]
     Active Substance: BUDESONIDE\FORMOTEROL FUMARATE DIHYDRATE

REACTIONS (17)
  - Schizophrenia [Unknown]
  - Confusional state [Recovering/Resolving]
  - Body temperature abnormal [Recovering/Resolving]
  - Slow response to stimuli [Recovering/Resolving]
  - Agitation [Recovering/Resolving]
  - Urinary incontinence [Recovering/Resolving]
  - Tachycardia [Recovering/Resolving]
  - Social avoidant behaviour [Unknown]
  - Tremor [Recovering/Resolving]
  - Catatonia [Recovering/Resolving]
  - Dyskinesia [Unknown]
  - Dystonia [Recovering/Resolving]
  - Hyperhidrosis [Recovering/Resolving]
  - Muscle rigidity [Recovering/Resolving]
  - Neuroleptic malignant syndrome [Recovered/Resolved]
  - Delirium [Unknown]
  - Left ventricular hypertrophy [Unknown]

NARRATIVE: CASE EVENT DATE: 2018
